FAERS Safety Report 10158607 (Version 1)
Quarter: 2014Q2

REPORT INFORMATION
  Report Type: Spontaneous
  Country: US (occurrence: US)
  Receive Date: 20140508
  Receipt Date: 20140508
  Transmission Date: 20141212
  Serious: No
  Sender: FDA-Public Use
  Company Number: US-009507513-1405USA003453

PATIENT
  Age: 47 Year
  Sex: Female

DRUGS (1)
  1. COZAAR [Suspect]
     Indication: HYPERTENSION
     Dosage: FREQUENCY-1 TABLET DAILY IN THE MORNING
     Route: 048
     Dates: start: 1999

REACTIONS (5)
  - Blood pressure inadequately controlled [Recovered/Resolved]
  - Product odour abnormal [Unknown]
  - Product odour abnormal [Unknown]
  - Product odour abnormal [Unknown]
  - Product quality issue [Unknown]
